FAERS Safety Report 10053767 (Version 1)
Quarter: 2014Q2

REPORT INFORMATION
  Report Type: Report from Study
  Country: US (occurrence: US)
  Receive Date: 20140402
  Receipt Date: 20140402
  Transmission Date: 20141212
  Serious: Yes (Other)
  Sender: FDA-Public Use
  Company Number: PHEH2014US006330

PATIENT
  Age: 61 Year
  Sex: Female

DRUGS (14)
  1. TOBI [Suspect]
     Indication: BRONCHITIS
     Dosage: 300/5 MG/ML, UNK
     Route: 055
  2. TOBI [Suspect]
     Dosage: 300/5 MG/ML, UNK
     Route: 055
  3. CALCIUM CARBONATE [Concomitant]
  4. MIRTAZAPINE [Concomitant]
  5. MULTI-VIT [Concomitant]
  6. TYLENOL [Concomitant]
  7. ZYRTEC [Concomitant]
  8. ALBUTEROL SULFATE [Concomitant]
     Route: 055
  9. GABAPENTIN [Concomitant]
  10. MELOXICAM [Concomitant]
  11. PROAIR HFA [Concomitant]
     Route: 055
  12. DRONABINOL [Concomitant]
  13. EXEMESTANE [Concomitant]
  14. LETROZOL [Concomitant]

REACTIONS (1)
  - Neoplasm malignant [Recovered/Resolved]
